FAERS Safety Report 13575801 (Version 1)
Quarter: 2017Q2

REPORT INFORMATION
  Report Type: Report from Study
  Country: BR (occurrence: BR)
  Receive Date: 20170524
  Receipt Date: 20170524
  Transmission Date: 20170830
  Serious: Yes (Hospitalization)
  Sender: FDA-Public Use
  Company Number: BR-UCBSA-2017019495

PATIENT
  Age: 73 Year
  Sex: Male

DRUGS (1)
  1. ROTIGOTINE [Suspect]
     Active Substance: ROTIGOTINE
     Indication: PARKINSON^S DISEASE
     Dosage: 6 MG, ONCE DAILY (QD)
     Route: 062
     Dates: start: 201511

REACTIONS (6)
  - Dyspepsia [Unknown]
  - Prostatic disorder [Unknown]
  - Haematemesis [Unknown]
  - Urinary tract infection [Unknown]
  - Parkinson^s disease [Not Recovered/Not Resolved]
  - Dysuria [Unknown]

NARRATIVE: CASE EVENT DATE: 20170515
